FAERS Safety Report 24060371 (Version 1)
Quarter: 2024Q3

REPORT INFORMATION
  Report Type: Spontaneous
  Country: IT (occurrence: IT)
  Receive Date: 20240708
  Receipt Date: 20240708
  Transmission Date: 20241017
  Serious: Yes (Hospitalization, Other)
  Sender: GILEAD
  Company Number: IT-GILEAD-2024-0679183

PATIENT
  Age: 45 Year
  Sex: Male

DRUGS (1)
  1. BIKTARVY [Suspect]
     Active Substance: BICTEGRAVIR SODIUM\EMTRICITABINE\TENOFOVIR ALAFENAMIDE FUMARATE
     Indication: HIV infection
     Dosage: 1 TABLET/DAY
     Route: 065
     Dates: start: 20240613

REACTIONS (2)
  - Acquired immunodeficiency syndrome [Not Recovered/Not Resolved]
  - CSF virus identified [Not Recovered/Not Resolved]

NARRATIVE: CASE EVENT DATE: 20240601
